FAERS Safety Report 11395261 (Version 4)
Quarter: 2015Q4

REPORT INFORMATION
  Report Type: Report from Study
  Country: US (occurrence: US)
  Receive Date: 20150819
  Receipt Date: 20151015
  Transmission Date: 20160304
  Serious: Yes (Hospitalization, Other)
  Sender: FDA-Public Use
  Company Number: US-ALEXION PHARMACEUTICALS INC.-A201503059

PATIENT
  Sex: Male
  Weight: 45.35 kg

DRUGS (1)
  1. SOLIRIS [Suspect]
     Active Substance: ECULIZUMAB
     Indication: HAEMOLYTIC URAEMIC SYNDROME
     Dosage: UNK
     Route: 042
     Dates: start: 20150801

REACTIONS (9)
  - Encephalopathy [Unknown]
  - Hypertension [Unknown]
  - Weight decreased [Unknown]
  - Diarrhoea [Unknown]
  - Tongue injury [Unknown]
  - Unresponsive to stimuli [Unknown]
  - Seizure [Unknown]
  - Transfusion reaction [Unknown]
  - Blood pressure systolic increased [Unknown]

NARRATIVE: CASE EVENT DATE: 20150806
